FAERS Safety Report 17977630 (Version 1)
Quarter: 2020Q3

REPORT INFORMATION
  Report Type: Spontaneous
  Country: US (occurrence: US)
  Receive Date: 20200703
  Receipt Date: 20200703
  Transmission Date: 20201103
  Serious: Yes (Other)
  Sender: FDA-Public Use
  Company Number: US-ROCHE-2635262

PATIENT
  Sex: Female

DRUGS (2)
  1. XOLAIR [Suspect]
     Active Substance: OMALIZUMAB
     Indication: MECHANICAL URTICARIA
     Dosage: STRENGTH: 150 MG/ML
     Route: 058
     Dates: start: 20191114
  2. XOLAIR [Suspect]
     Active Substance: OMALIZUMAB
     Indication: PSORIATIC ARTHROPATHY

REACTIONS (1)
  - Kidney infection [Unknown]
